FAERS Safety Report 8130381-7 (Version None)
Quarter: 2012Q1

REPORT INFORMATION
  Report Type: 
  Country: None (occurrence: None)
  Receive Date: 20120210
  Receipt Date: 20120208
  Transmission Date: 20120608
  Serious: Yes (Death, Other)
  Sender: FDA-Public Use
  Company Number: PHFR2011GB006978

PATIENT
  Sex: Male

DRUGS (1)
  1. GLEEVEC [Suspect]

REACTIONS (4)
  - DEATH [None]
  - ANAEMIA [None]
  - TUMOUR HAEMORRHAGE [None]
  - GASTROINTESTINAL STROMAL TUMOUR [None]
